FAERS Safety Report 13998862 (Version 2)
Quarter: 2017Q4

REPORT INFORMATION
  Report Type: Spontaneous
  Country: US (occurrence: US)
  Receive Date: 20170922
  Receipt Date: 20171108
  Transmission Date: 20180321
  Serious: Yes (Death, Hospitalization, Other)
  Sender: FDA-Public Use
  Company Number: US-PFIZER INC-2015001912

PATIENT
  Age: 55 Year
  Sex: Male

DRUGS (1)
  1. RAPAMUNE [Suspect]
     Active Substance: SIROLIMUS
     Indication: RENAL TRANSPLANT
     Dosage: 1 MG, 2X/DAY
     Route: 048
     Dates: start: 2004

REACTIONS (9)
  - Cardiogenic shock [Fatal]
  - Hydrocephalus [Unknown]
  - Confusional state [Unknown]
  - Hypoxia [Fatal]
  - Headache [Unknown]
  - Cardiac arrest [Fatal]
  - Gait disturbance [Unknown]
  - Acute respiratory failure [Fatal]
  - Pyrexia [Unknown]
